FAERS Safety Report 9255392 (Version 1)
Quarter: 2013Q2

REPORT INFORMATION
  Report Type: Spontaneous
  Country: US (occurrence: US)
  Receive Date: 20130425
  Receipt Date: 20130425
  Transmission Date: 20140414
  Serious: No
  Sender: FDA-Public Use
  Company Number: US-BRISTOL-MYERS SQUIBB COMPANY-16689200

PATIENT
  Age: 75 Year
  Sex: Female
  Weight: 58.96 kg

DRUGS (7)
  1. HYDREA CAPS 500 MG [Suspect]
     Indication: ESSENTIAL THROMBOCYTHAEMIA
     Dosage: 1DF=1 CAPS,500MG DAILY,1000MG ALT DOSE,ALSO TAKEN ON 30MAY2012?HYDREA 2 CAPS EVERY OTHER DAY
     Route: 048
     Dates: start: 20120530
  2. COZAAR [Concomitant]
     Indication: HYPERTENSION
  3. VITAMIN C [Concomitant]
     Indication: ASTHMA
  4. SYNTHROID [Concomitant]
     Indication: THYROID FUNCTION TEST ABNORMAL
  5. NEXIUM [Concomitant]
     Indication: GASTRITIS
  6. PROVENTIL [Concomitant]
  7. UNACIM [Concomitant]

REACTIONS (3)
  - Hot flush [Not Recovered/Not Resolved]
  - Alopecia [Unknown]
  - Fatigue [Unknown]
